FAERS Safety Report 10180229 (Version 2)
Quarter: 2014Q2

REPORT INFORMATION
  Report Type: Spontaneous
  Country: US (occurrence: US)
  Receive Date: 20140519
  Receipt Date: 20140519
  Transmission Date: 20141212
  Serious: No
  Sender: FDA-Public Use
  Company Number: US-AMGEN INC.-USASP2013083516

PATIENT
  Age: 61 Year
  Sex: Female
  Weight: 60.68 kg

DRUGS (4)
  1. PROLIA [Suspect]
     Indication: OSTEOPOROSIS
     Dosage: 60 MG, Q6MO
     Route: 058
     Dates: start: 20131031
  2. LIPITOR [Concomitant]
     Dosage: 20 MG, QD
     Route: 065
  3. PREMPRO [Concomitant]
     Dosage: 0.3-1.5 MG, QD
     Route: 065
  4. BETAMETHASONE DIPROPIONATE [Concomitant]
     Dosage: 0.05 %, BID
     Route: 065

REACTIONS (3)
  - Urinary tract infection [Unknown]
  - Dysuria [Recovered/Resolved]
  - Blood urine present [Recovered/Resolved]
